FAERS Safety Report 5557157-9 (Version None)
Quarter: 2007Q4

REPORT INFORMATION
  Report Type: 
  Country: None (occurrence: None)
  Receive Date: 20071214
  Receipt Date: 20041201
  Transmission Date: 20080405
  Serious: Yes (Other)
  Sender: FDA-Public Use
  Company Number: IT-JNJFOC-20071101528

PATIENT
  Age: 35 Year
  Sex: Female
  Weight: 68 kg

DRUGS (1)
  1. HALOPERIDOL DECANOATE [Suspect]
     Indication: DISSOCIATIVE DISORDER
     Dosage: DOSAGE FORMS: 51-100MG.
     Route: 050

REACTIONS (1)
  - WEIGHT INCREASED [None]
